FAERS Safety Report 10009349 (Version 3)
Quarter: 2015Q3

REPORT INFORMATION
  Report Type: Spontaneous
  Country: US (occurrence: US)
  Receive Date: 20140313
  Receipt Date: 20150814
  Transmission Date: 20151125
  Serious: No
  Sender: FDA-Public Use
  Company Number: US-GILEAD-2013-0075205

PATIENT
  Age: 47 Year
  Sex: Male

DRUGS (2)
  1. ADCIRCA [Concomitant]
     Active Substance: TADALAFIL
  2. LETAIRIS [Suspect]
     Active Substance: AMBRISENTAN
     Indication: PORTOPULMONARY HYPERTENSION
     Dosage: 5 MG, QD
     Dates: start: 20130429

REACTIONS (7)
  - Eye swelling [Unknown]
  - Asthenia [Unknown]
  - Seasonal allergy [Unknown]
  - Venous operation [Unknown]
  - Peripheral swelling [Unknown]
  - Right ventricular failure [Unknown]
  - Fluid retention [Unknown]
